FAERS Safety Report 24210123 (Version 1)
Quarter: 2024Q3

REPORT INFORMATION
  Report Type: Spontaneous
  Country: US (occurrence: None)
  Receive Date: 20240813
  Receipt Date: 20240813
  Transmission Date: 20241016
  Serious: Yes (Hospitalization)
  Sender: Public
  Company Number: None

PATIENT
  Age: 44 Year
  Sex: Female
  Weight: 111.6 kg

DRUGS (1)
  1. LUMASON [Suspect]
     Active Substance: SULFUR HEXAFLUORIDE
     Indication: Ultrasound Doppler
     Dosage: 2.1 ML ONCE INTRAVENOUS
     Route: 042

REACTIONS (5)
  - Heart rate increased [None]
  - Pruritus [None]
  - Rash [None]
  - Hyperhidrosis [None]
  - Contrast media reaction [None]

NARRATIVE: CASE EVENT DATE: 20240813
